FAERS Safety Report 6759691-2 (Version None)
Quarter: 2010Q2

REPORT INFORMATION
  Report Type: 
  Country: None (occurrence: None)
  Receive Date: 20100604
  Receipt Date: 20100525
  Transmission Date: 20101027
  Serious: Yes (Other)
  Sender: FDA-Public Use
  Company Number: DSJ-2010-08728

PATIENT
  Age: 84 Year
  Sex: Female

DRUGS (5)
  1. BENICAR HCT [Suspect]
     Indication: HYPERTENSION
     Dosage: 10/6.25MG (1 IN 1 D), PER ORAL
     Route: 048
     Dates: start: 20070101
  2. INDAPAMIDE (INDAPAMIDE) (INDAPAMIDE) [Concomitant]
  3. TRIMETAZIDINE (TRIMETAZIDINE) (TRIMETAZIDINE) [Concomitant]
  4. ACETYLSALICYLIC ACID SRT [Concomitant]
  5. ATORVASTATIN (ATORVASTATIN) (ATORVASTATIN) [Concomitant]

REACTIONS (1)
  - ANGIOPLASTY [None]
